FAERS Safety Report 21711988 (Version 2)
Quarter: 2022Q4

REPORT INFORMATION
  Report Type: Spontaneous
  Country: CA (occurrence: None)
  Receive Date: 20221212
  Receipt Date: 20221214
  Transmission Date: 20230113
  Serious: Yes (Hospitalization, Other)
  Sender: FDA-Public Use
  Company Number: CA-PFIZER INC-202201357155

PATIENT
  Age: 41 Year
  Sex: Male

DRUGS (6)
  1. METHOTREXATE [Suspect]
     Active Substance: METHOTREXATE
     Indication: Colitis ulcerative
     Dosage: 1 DF, DISCONTINUED
     Route: 065
     Dates: start: 202206, end: 202211
  2. PREDNISONE [Concomitant]
     Active Substance: PREDNISONE
     Dosage: UNK, DECREASING DOSE FOR 8 WEEKS
     Route: 065
  3. RENFLEXIS [Concomitant]
     Active Substance: INFLIXIMAB-ABDA
     Dosage: UNK
     Route: 065
     Dates: end: 20221208
  4. SYMBICORT [Concomitant]
     Active Substance: BUDESONIDE\FORMOTEROL FUMARATE DIHYDRATE
     Indication: Asthma
     Dosage: UNK, AS NEEDED
     Route: 065
  5. IMODIUM [Concomitant]
     Active Substance: LOPERAMIDE HYDROCHLORIDE
     Dosage: UNK, 1CO DIE
     Route: 065
  6. IRON [Concomitant]
     Active Substance: IRON
     Dosage: UNK
     Route: 042

REACTIONS (5)
  - Feeding disorder [Unknown]
  - Haematochezia [Unknown]
  - Defaecation urgency [Unknown]
  - Frequent bowel movements [Unknown]
  - Product use in unapproved indication [Unknown]

NARRATIVE: CASE EVENT DATE: 20220101
